FAERS Safety Report 6999397-8 (Version None)
Quarter: 2010Q3

REPORT INFORMATION
  Report Type: 
  Country: None (occurrence: None)
  Receive Date: 20100920
  Receipt Date: 20100607
  Transmission Date: 20110219
  Serious: No
  Sender: FDA-Public Use
  Company Number: US-ASTRAZENECA-2010SE26265

PATIENT
  Sex: Female
  Weight: 73.5 kg

DRUGS (7)
  1. SEROQUEL XR [Suspect]
     Indication: BIPOLAR I DISORDER
     Route: 048
     Dates: start: 20100301
  2. NEXIUM [Concomitant]
     Indication: GASTROOESOPHAGEAL REFLUX DISEASE
     Route: 048
  3. NEURONTIN [Concomitant]
     Indication: MOOD ALTERED
     Route: 048
  4. BUSPAR [Concomitant]
     Indication: ANXIETY
     Route: 048
  5. VALIUM [Concomitant]
     Indication: ANXIETY
     Route: 048
  6. LISINOPRIL AND HYDROCHLOROTHIAZIDE [Concomitant]
     Indication: HYPERTENSION
     Dosage: 10/12.5 MG DAILY
     Route: 048
  7. PERCOSET [Concomitant]
     Indication: PAIN
     Dosage: 5/325 MG FOUR TIMES DAILY
     Route: 048

REACTIONS (4)
  - ANGER [None]
  - ANXIETY [None]
  - HEADACHE [None]
  - SOMNOLENCE [None]
